FAERS Safety Report 23410882 (Version 1)
Quarter: 2024Q1

REPORT INFORMATION
  Report Type: Spontaneous
  Country: FR (occurrence: None)
  Receive Date: 20240117
  Receipt Date: 20240117
  Transmission Date: 20240409
  Serious: Yes (Hospitalization)
  Sender: FDA-Public Use
  Company Number: 2024A011714

PATIENT
  Age: 91 Year
  Sex: Female

DRUGS (12)
  1. OMEPRAZOLE [Suspect]
     Active Substance: OMEPRAZOLE
     Indication: Product used for unknown indication
     Dosage: X 20 MILLIGRAM IN 1 DAY // 20 MILLIGRAM,0-0-1 CP PER DAY
     Route: 048
     Dates: start: 20230711
  2. ENTRESTO [Suspect]
     Active Substance: SACUBITRIL\VALSARTAN
     Indication: Myocardial ischaemia
     Dosage: X 2 DOSAGE FORM IN 1 DAY // 2 DOSAGE FORM,24/26 MG- 1-0-1 CP/DAY
     Route: 048
     Dates: start: 20230711
  3. JARDIANCE [Suspect]
     Active Substance: EMPAGLIFLOZIN
     Indication: Urinary tract disorder
     Route: 048
     Dates: start: 20230719
  4. GAVISCON [Suspect]
     Active Substance: ALUMINUM HYDROXIDE\MAGNESIUM CARBONATE
     Indication: Abdominal pain upper
     Dosage: X 3 DOSAGE FORM IN 1 DAY,3 SACHETS A DAY,DRINKABLE SUSPENSION IN
     Route: 048
     Dates: start: 20230711
  5. CHOLECALCIFEROL [Concomitant]
     Active Substance: CHOLECALCIFEROL
  6. DAPAGLIFLOZIN [Concomitant]
     Active Substance: DAPAGLIFLOZIN
     Dates: start: 202301
  7. LEVOTHYROXINE [Concomitant]
     Active Substance: LEVOTHYROXINE\LEVOTHYROXINE SODIUM
  8. LORAZEPAM [Concomitant]
     Active Substance: LORAZEPAM
  9. MIRTAZAPINE [Concomitant]
     Active Substance: MIRTAZAPINE
  10. FUROSEMIDE [Concomitant]
     Active Substance: FUROSEMIDE
  11. ACETAMINOPHEN [Concomitant]
     Active Substance: ACETAMINOPHEN
  12. BISOPROLOL [Concomitant]
     Active Substance: BISOPROLOL\BISOPROLOL FUMARATE

REACTIONS (2)
  - Abdominal pain upper [Recovering/Resolving]
  - Hypotension [Recovered/Resolved]

NARRATIVE: CASE EVENT DATE: 20230719
